FAERS Safety Report 24979396 (Version 1)
Quarter: 2025Q1

REPORT INFORMATION
  Report Type: Spontaneous
  Country: FR (occurrence: FR)
  Receive Date: 20250218
  Receipt Date: 20250218
  Transmission Date: 20250409
  Serious: Yes (Other)
  Sender: AUROBINDO
  Company Number: FR-MLMSERVICE-20250107-PI329021-00077-2

PATIENT
  Age: 62 Year
  Sex: Male

DRUGS (2)
  1. CAPECITABINE [Suspect]
     Active Substance: CAPECITABINE
     Indication: Metastases to bone
     Dosage: 1500 MILLIGRAM, TWO TIMES A DAY (1500 MG (1000 MG/M2) TWICE DAILY (14/21DAYS) FOR TWO CYCLES, AFTER
     Route: 065
     Dates: start: 2020
  2. CAPECITABINE [Suspect]
     Active Substance: CAPECITABINE
     Dosage: 1150 MILLIGRAM, TWO TIMES A DAY (FOR THE NEXT 20 COURSES)
     Route: 065
     Dates: start: 2020

REACTIONS (3)
  - Palmar-plantar erythrodysaesthesia syndrome [Unknown]
  - Anaemia [Unknown]
  - Drug ineffective [Unknown]
